FAERS Safety Report 4381389-9 (Version None)
Quarter: 2004Q2

REPORT INFORMATION
  Report Type: 
  Country: None (occurrence: None)
  Receive Date: 20040617
  Receipt Date: 20040617
  Transmission Date: 20050107
  Serious: Yes (Disabling)
  Sender: FDA-Public Use
  Company Number: None

PATIENT
  Age: 57 Year
  Sex: Female
  Weight: 74.8435 kg

DRUGS (3)
  1. RINGER'S [Suspect]
     Indication: RECTAL CANCER
     Dosage: PV-2 LITERS
     Dates: start: 20000104
  2. RINGER'S [Suspect]
     Indication: RESUSCITATION
     Dosage: PV-2 LITERS
     Dates: start: 20000104
  3. HESPAN [Suspect]
     Dosage: PV 1 LITER

REACTIONS (1)
  - DIARRHOEA [None]
